FAERS Safety Report 5316939-9 (Version None)
Quarter: 2007Q2

REPORT INFORMATION
  Report Type: 
  Country: None (occurrence: None)
  Receive Date: 20070501
  Receipt Date: 20070501
  Transmission Date: 20071010
  Serious: Yes (Hospitalization)
  Sender: FDA-Public Use
  Company Number: None

PATIENT
  Sex: Male
  Weight: 59.8748 kg

DRUGS (6)
  1. THALOMID [Suspect]
     Indication: PROSTATE CANCER METASTATIC
     Dosage: 100 MG   QHS   PO
     Route: 048
     Dates: start: 20070322, end: 20070427
  2. XELODA [Suspect]
     Indication: PROSTATE CANCER METASTATIC
     Dosage: 2000 MG  QHS   PO
     Route: 048
     Dates: start: 20070329, end: 20070427
  3. LORTAB [Concomitant]
  4. POTASSIUM ACETATE [Concomitant]
  5. ZOFRAN [Concomitant]
  6. COUMADIN [Concomitant]

REACTIONS (4)
  - DYSPNOEA [None]
  - HYPERHIDROSIS [None]
  - PALPITATIONS [None]
  - SUPRAVENTRICULAR TACHYCARDIA [None]
